FAERS Safety Report 13953817 (Version 1)
Quarter: 2017Q3

REPORT INFORMATION
  Report Type: Spontaneous
  Country: US (occurrence: US)
  Receive Date: 20170911
  Receipt Date: 20170911
  Transmission Date: 20171128
  Serious: No
  Sender: FDA-Public Use
  Company Number: US-PFIZER INC-2017390575

PATIENT
  Age: 60 Year
  Sex: Female
  Weight: 74.39 kg

DRUGS (2)
  1. LETROZOLE. [Concomitant]
     Active Substance: LETROZOLE
     Indication: BREAST CANCER
     Dosage: EVERY DAY
     Dates: start: 2016
  2. IBRANCE [Suspect]
     Active Substance: PALBOCICLIB
     Indication: BREAST CANCER
     Dosage: 125MG ONCE A DAY FOR 21 DAYS AND THEN A WEEK OFF
     Dates: start: 2016

REACTIONS (1)
  - White blood cell count decreased [Unknown]
